FAERS Safety Report 11763331 (Version 1)
Quarter: 2015Q4

REPORT INFORMATION
  Report Type: Spontaneous
  Country: US (occurrence: US)
  Receive Date: 20151120
  Receipt Date: 20151120
  Transmission Date: 20160304
  Serious: No
  Sender: FDA-Public Use
  Company Number: US-ELI_LILLY_AND_COMPANY-US201302008318

PATIENT
  Age: 52 Year
  Sex: Female

DRUGS (2)
  1. FORTEO [Suspect]
     Active Substance: TERIPARATIDE
     Indication: OSTEOPOROSIS
     Dosage: 20 UG, QD
     Dates: start: 20130215, end: 20130223
  2. PREDNISONE. [Concomitant]
     Active Substance: PREDNISONE
     Dosage: UNK, UNKNOWN

REACTIONS (11)
  - Pain in extremity [Not Recovered/Not Resolved]
  - Incorrect dose administered [Unknown]
  - Neuralgia [Unknown]
  - Headache [Unknown]
  - Chest pain [Unknown]
  - Cellulitis [Unknown]
  - Dizziness [Unknown]
  - Constipation [Unknown]
  - Peripheral swelling [Unknown]
  - Nausea [Unknown]
  - Erythema [Unknown]

NARRATIVE: CASE EVENT DATE: 201302
